FAERS Safety Report 8811580 (Version 3)
Quarter: 2013Q1

REPORT INFORMATION
  Report Type: Spontaneous
  Country: FR (occurrence: None)
  Receive Date: 20120924
  Receipt Date: 20121213
  Transmission Date: 20140127
  Serious: Yes (Hospitalization)
  Sender: FDA-Public Use
  Company Number: TPA2012A06890

PATIENT
  Age: 83 Year
  Sex: Male

DRUGS (2)
  1. ADENURIC [Suspect]
     Indication: PRODUCT USED FOR UNKNOWN INDICATION
     Route: 048
     Dates: start: 201207
  2. COLCHIMAX [Suspect]
     Route: 048

REACTIONS (6)
  - Leukocytoclastic vasculitis [None]
  - Glomerulonephritis [None]
  - Septic shock [None]
  - Purpura [None]
  - Renal failure [None]
  - Dialysis [None]
